FAERS Safety Report 8017018-2 (Version None)
Quarter: 2012Q1

REPORT INFORMATION
  Report Type: 
  Country: None (occurrence: None)
  Receive Date: 20120102
  Receipt Date: 20111228
  Transmission Date: 20120608
  Serious: Yes (Other)
  Sender: FDA-Public Use
  Company Number: PHHY2011TW73963

PATIENT

DRUGS (1)
  1. ZOLEDRONOC ACID [Suspect]
     Dosage: 5 MG, UNK
     Route: 042
     Dates: start: 20100301

REACTIONS (10)
  - PAIN [None]
  - OSTEONECROSIS OF JAW [None]
  - EXPOSED BONE IN JAW [None]
  - IMPAIRED HEALING [None]
  - ERYTHEMA [None]
  - SOFT TISSUE INFECTION [None]
  - OSTEOMYELITIS [None]
  - SWELLING [None]
  - CHEST PAIN [None]
  - GINGIVAL INFECTION [None]
